FAERS Safety Report 14655729 (Version 2)
Quarter: 2018Q1

REPORT INFORMATION
  Report Type: Spontaneous
  Country: FR (occurrence: FR)
  Receive Date: 20180319
  Receipt Date: 20180328
  Transmission Date: 20180509
  Serious: Yes (Other)
  Sender: FDA-Public Use
  Company Number: FR-SA-2017SA163217

PATIENT
  Age: 61 Year
  Sex: Male
  Weight: 93 kg

DRUGS (12)
  1. XGEVA [Suspect]
     Active Substance: DENOSUMAB
     Indication: PROSTATE CANCER METASTATIC
     Route: 058
     Dates: start: 201309
  2. XOFIGO [Suspect]
     Active Substance: RADIUM RA-223 DICHLORIDE
     Indication: PROSTATE CANCER METASTATIC
     Dosage: DOSE  100 KBQ/ML, CYCLICAL
     Route: 051
     Dates: start: 201612, end: 20170502
  3. GONADORELIN [Concomitant]
     Active Substance: GONADORELIN
  4. CABAZITAXEL [Suspect]
     Active Substance: CABAZITAXEL
     Indication: PROSTATE CANCER METASTATIC
     Route: 051
  5. ZOMETA [Concomitant]
     Active Substance: ZOLEDRONIC ACID
     Route: 065
     Dates: start: 2012
  6. ELIGARD [Concomitant]
     Active Substance: LEUPROLIDE ACETATE
  7. DECAPEPTYL [Suspect]
     Active Substance: TRIPTORELIN
     Indication: PROSTATE CANCER METASTATIC
     Dosage: DOSE 11.25 MG, Q3MO
     Route: 030
     Dates: start: 201209
  8. DOCETAXEL. [Concomitant]
     Active Substance: DOCETAXEL
  9. CASODEX [Concomitant]
     Active Substance: BICALUTAMIDE
  10. DECTANCYL [Suspect]
     Active Substance: DEXAMETHASONE
     Indication: PROSTATE CANCER METASTATIC
     Route: 048
     Dates: start: 201502
  11. XTANDI [Suspect]
     Active Substance: ENZALUTAMIDE
     Indication: PROSTATE CANCER METASTATIC
     Route: 048
     Dates: start: 201601
  12. ZYTIGA [Concomitant]
     Active Substance: ABIRATERONE ACETATE
     Route: 065
     Dates: start: 201309

REACTIONS (6)
  - Hyphaema [Recovered/Resolved]
  - Vision blurred [Recovering/Resolving]
  - Pigmentary glaucoma [Unknown]
  - Cyclitis [Recovered/Resolved]
  - Central nervous system lesion [Unknown]
  - Metastatic neoplasm [Unknown]

NARRATIVE: CASE EVENT DATE: 201604
